FAERS Safety Report 10026320 (Version 1)
Quarter: 2014Q1

REPORT INFORMATION
  Report Type: Spontaneous
  Country: CA (occurrence: CA)
  Receive Date: 20140321
  Receipt Date: 20140321
  Transmission Date: 20141002
  Serious: Yes (Hospitalization, Other)
  Sender: FDA-Public Use
  Company Number: CA-AMGEN-CANSP2014018658

PATIENT
  Age: 90 Year
  Sex: Female

DRUGS (1)
  1. PROLIA [Suspect]
     Indication: OSTEOPOROSIS POSTMENOPAUSAL
     Dosage: UNK
     Route: 065
     Dates: start: 20110721

REACTIONS (9)
  - Infarction [Not Recovered/Not Resolved]
  - Loss of consciousness [Unknown]
  - Aphagia [Unknown]
  - Pneumonia [Not Recovered/Not Resolved]
  - Fall [Unknown]
  - Influenza [Not Recovered/Not Resolved]
  - Abasia [Unknown]
  - Weight decreased [Unknown]
  - Malaise [Unknown]
